FAERS Safety Report 11734159 (Version 1)
Quarter: 2015Q4

REPORT INFORMATION
  Report Type: Report from Study
  Country: BE (occurrence: BE)
  Receive Date: 20151113
  Receipt Date: 20151113
  Transmission Date: 20160304
  Serious: Yes (Hospitalization)
  Sender: FDA-Public Use
  Company Number: BE-WATSON-2015-23296

PATIENT
  Age: 62 Year
  Sex: Male

DRUGS (3)
  1. EFFORTIL [Suspect]
     Active Substance: ETILEFRINE HYDROCHLORIDE
     Indication: HYPOTENSION
     Dosage: UNK
     Route: 065
     Dates: start: 20130318
  2. RAPAFLO [Suspect]
     Active Substance: SILODOSIN
     Indication: URINARY RETENTION
     Dosage: 8 MG, DAILY
     Route: 048
     Dates: start: 20130507, end: 20130704
  3. CRIZOTINIB [Suspect]
     Active Substance: CRIZOTINIB
     Indication: NON-SMALL CELL LUNG CANCER
     Dosage: 250 MG, TWICE DAILY
     Route: 048
     Dates: start: 20130218

REACTIONS (2)
  - Orthostatic hypotension [Recovered/Resolved]
  - Myoclonus [Recovered/Resolved]

NARRATIVE: CASE EVENT DATE: 20130701
